FAERS Safety Report 16058645 (Version 1)
Quarter: 2019Q1

REPORT INFORMATION
  Report Type: Spontaneous
  Country: JP (occurrence: JP)
  Receive Date: 20190311
  Receipt Date: 20190311
  Transmission Date: 20190418
  Serious: Yes (Hospitalization)
  Sender: FDA-Public Use
  Company Number: JP-JNJFOC-20190224071

PATIENT
  Age: 81 Year
  Sex: Male

DRUGS (2)
  1. INSULIN [Concomitant]
     Active Substance: INSULIN NOS
     Route: 065
  2. CANAGLU [Suspect]
     Active Substance: CANAGLIFLOZIN
     Indication: DIABETES MELLITUS
     Route: 048
     Dates: start: 20180512, end: 20180515

REACTIONS (3)
  - Decreased appetite [Recovered/Resolved]
  - Dyspnoea [Recovered/Resolved]
  - Diabetic ketoacidosis [Recovered/Resolved]

NARRATIVE: CASE EVENT DATE: 20180512
